FAERS Safety Report 24645547 (Version 1)
Quarter: 2024Q4

REPORT INFORMATION
  Report Type: Spontaneous
  Country: GB (occurrence: GB)
  Receive Date: 20241121
  Receipt Date: 20241121
  Transmission Date: 20250114
  Serious: Yes (Hospitalization, Disabling, Other)
  Sender: AUROBINDO
  Company Number: GB-MLMSERVICE-20241104-PI250393-00040-1

PATIENT
  Age: 9 Decade
  Sex: Female

DRUGS (1)
  1. ALENDRONIC ACID [Suspect]
     Active Substance: ALENDRONIC ACID
     Indication: Osteoporosis
     Dosage: 70 MILLIGRAM, EVERY WEEK, SHE HAD BEEN ON 70 MG ALENDRONIC ACID WEEKLY FOR A TOTAL OF 15 YEARS. THE
     Route: 065

REACTIONS (4)
  - Atypical femur fracture [Recovering/Resolving]
  - Pathological fracture [Recovered/Resolved]
  - Pelvic fracture [Recovered/Resolved]
  - Osteopenia [Unknown]

NARRATIVE: CASE EVENT DATE: 20170101
